FAERS Safety Report 6743524-4 (Version None)
Quarter: 2010Q2

REPORT INFORMATION
  Report Type: 
  Country: None (occurrence: None)
  Receive Date: 20100526
  Receipt Date: 20100526
  Transmission Date: 20101027
  Serious: No
  Sender: FDA-Public Use
  Company Number: None

PATIENT
  Age: 59 Year
  Sex: Female
  Weight: 83.9154 kg

DRUGS (1)
  1. REGLAN [Suspect]
     Indication: ABDOMINAL DISTENSION
     Dosage: 10MG TWICE DAILY/THEN 1 DAILY
     Dates: start: 19990101, end: 20100501

REACTIONS (6)
  - ABASIA [None]
  - BURNING SENSATION [None]
  - DYSKINESIA [None]
  - MUSCLE TIGHTNESS [None]
  - MUSCULAR WEAKNESS [None]
  - TREMOR [None]
